FAERS Safety Report 19400457 (Version 3)
Quarter: 2021Q3

REPORT INFORMATION
  Report Type: Report from Study
  Country: US (occurrence: US)
  Receive Date: 20210610
  Receipt Date: 20210909
  Transmission Date: 20211014
  Serious: Yes (Hospitalization, Other)
  Sender: FDA-Public Use
  Company Number: US-INCYTE CORPORATION-2021IN003985

PATIENT

DRUGS (4)
  1. JAKAFI [Suspect]
     Active Substance: RUXOLITINIB
     Dosage: 15 MILLIGRAM, BID
     Route: 048
  2. JAKAFI [Suspect]
     Active Substance: RUXOLITINIB
     Indication: MYELOFIBROSIS
     Dosage: 10 MILLIGRAM, BID
     Route: 048
     Dates: start: 20210309
  3. JAKAFI [Suspect]
     Active Substance: RUXOLITINIB
     Dosage: 10 MILLIGRAM, TID
     Route: 048
     Dates: start: 20210601
  4. JAKAFI [Suspect]
     Active Substance: RUXOLITINIB
     Dosage: 15 MILLIGRAM, BID
     Route: 048

REACTIONS (14)
  - Dizziness [Unknown]
  - Pyrexia [Unknown]
  - Splenomegaly [Unknown]
  - Disease progression [Unknown]
  - Contusion [Unknown]
  - Acute lymphocytic leukaemia [Recovered/Resolved]
  - Decreased appetite [Unknown]
  - Haemoglobin abnormal [Unknown]
  - Nausea [Unknown]
  - Weight increased [Unknown]
  - Skin haemorrhage [Unknown]
  - White blood cell count decreased [Unknown]
  - Platelet count decreased [Unknown]
  - Erythema [Unknown]

NARRATIVE: CASE EVENT DATE: 202108
